FAERS Safety Report 24629843 (Version 1)
Quarter: 2024Q4

REPORT INFORMATION
  Report Type: Spontaneous
  Country: DK (occurrence: DK)
  Receive Date: 20241118
  Receipt Date: 20241118
  Transmission Date: 20250114
  Serious: Yes (Other)
  Sender: TAKEDA
  Company Number: None

PATIENT
  Age: 41 Year
  Sex: Female
  Weight: 85 kg

DRUGS (2)
  1. INTUNIV [Suspect]
     Active Substance: GUANFACINE HYDROCHLORIDE
     Indication: Attention deficit hyperactivity disorder
     Dosage: 2 MILLIGRAM, QD
     Dates: start: 20240718, end: 20240727
  2. DOSTINEX [Concomitant]
     Active Substance: CABERGOLINE
     Indication: Pituitary tumour benign
     Dosage: 0.25 MILLIGRAM, 1/WEEK
     Dates: start: 20220812

REACTIONS (5)
  - Pruritus [Unknown]
  - Hepatic enzyme increased [Recovering/Resolving]
  - Bradycardia [Recovering/Resolving]
  - Pulmonary congestion [Recovering/Resolving]
  - Dyspnoea [Recovered/Resolved]

NARRATIVE: CASE EVENT DATE: 20240701
